FAERS Safety Report 7976828-8 (Version None)
Quarter: 2011Q4

REPORT INFORMATION
  Report Type: 
  Country: None (occurrence: None)
  Receive Date: 20111213
  Receipt Date: 20111103
  Transmission Date: 20120403
  Serious: Yes (Other)
  Sender: FDA-Public Use
  Company Number: US-AMGEN-USASP2011053515

PATIENT
  Age: 39 Year
  Sex: Female

DRUGS (9)
  1. ENBREL [Suspect]
     Indication: RHEUMATOID ARTHRITIS
     Dosage: 50 MG, WEEKLY X 3 WEEKS
     Route: 058
     Dates: end: 20111011
  2. OXYCONTIN [Concomitant]
     Dosage: UNK
  3. AMBIEN [Concomitant]
     Dosage: UNK
  4. PERCOCET [Concomitant]
     Dosage: UNK
  5. PROPRANOLOL [Concomitant]
     Dosage: UNK
  6. ATIVAN [Concomitant]
     Dosage: UNK
  7. FOLIC ACID [Concomitant]
     Dosage: UNK
  8. NEXIUM [Concomitant]
     Dosage: UNK
  9. MINOCYCLINE HCL [Concomitant]
     Dosage: UNK

REACTIONS (1)
  - HERPES ZOSTER [None]
